FAERS Safety Report 25482200 (Version 1)
Quarter: 2025Q2

REPORT INFORMATION
  Report Type: Spontaneous
  Country: DE (occurrence: DE)
  Receive Date: 20250626
  Receipt Date: 20250626
  Transmission Date: 20250717
  Serious: Yes (Hospitalization)
  Sender: AMGEN
  Company Number: DE-AMGEN-DEUSP2025121377

PATIENT

DRUGS (1)
  1. ADALIMUMAB [Suspect]
     Active Substance: ADALIMUMAB
     Indication: Colitis ulcerative
     Route: 065

REACTIONS (3)
  - Crohn^s disease [Unknown]
  - Colitis ulcerative [Unknown]
  - Therapy partial responder [Unknown]
